FAERS Safety Report 11175774 (Version 1)
Quarter: 2015Q2

REPORT INFORMATION
  Report Type: Spontaneous
  Country: FR (occurrence: FR)
  Receive Date: 20150609
  Receipt Date: 20150609
  Transmission Date: 20150821
  Serious: Yes (Hospitalization)
  Sender: FDA-Public Use
  Company Number: FR-PFIZER INC-2015188713

PATIENT
  Age: 45 Year
  Sex: Male

DRUGS (3)
  1. LAMALINE [Concomitant]
     Active Substance: ACETAMINOPHEN\CAFFEINE\OPIUM
  2. SOLU-MEDROL [Suspect]
     Active Substance: METHYLPREDNISOLONE SODIUM SUCCINATE
     Indication: BACK PAIN
     Dosage: 120 MG, SINGLE
     Route: 042
     Dates: start: 201409, end: 201409
  3. PROFENID [Concomitant]
     Active Substance: KETOPROFEN

REACTIONS (5)
  - Urticaria [Recovered/Resolved]
  - Hypotension [Recovered/Resolved]
  - Malaise [Recovered/Resolved]
  - Pruritus [Unknown]
  - Presyncope [Unknown]

NARRATIVE: CASE EVENT DATE: 201409
